FAERS Safety Report 13355378 (Version 1)
Quarter: 2017Q1

REPORT INFORMATION
  Report Type: Spontaneous
  Country: MT (occurrence: MT)
  Receive Date: 20170321
  Receipt Date: 20170321
  Transmission Date: 20170429
  Serious: Yes (Hospitalization, Other)
  Sender: FDA-Public Use
  Company Number: MT-GLENMARK PHARMACEUTICALS-2017GMK026800

PATIENT
  Age: 69 Year
  Sex: Male

DRUGS (3)
  1. ROPINIROLE HYDROCHLORIDE. [Suspect]
     Active Substance: ROPINIROLE HYDROCHLORIDE
     Indication: PARKINSON^S DISEASE
     Dosage: UNK
     Route: 065
  2. CO-CARELDOPA [Interacting]
     Active Substance: CARBIDOPA\LEVODOPA
     Indication: PARKINSON^S DISEASE
     Dosage: UNK
     Route: 065
  3. AMANTADINE [Interacting]
     Active Substance: AMANTADINE
     Indication: PARKINSON^S DISEASE
     Route: 065

REACTIONS (4)
  - Neuroleptic malignant syndrome [Recovering/Resolving]
  - Drug interaction [Recovering/Resolving]
  - Food interaction [Recovering/Resolving]
  - Drug withdrawal syndrome [Recovering/Resolving]
